FAERS Safety Report 19164224 (Version 1)
Quarter: 2021Q2

REPORT INFORMATION
  Report Type: Spontaneous
  Country: IT (occurrence: IT)
  Receive Date: 20210421
  Receipt Date: 20210421
  Transmission Date: 20210717
  Serious: Yes (Other)
  Sender: FDA-Public Use
  Company Number: IT-AUROBINDO-AUR-APL-2017-07466

PATIENT
  Age: 49 Year
  Sex: Female

DRUGS (5)
  1. CETIRIZINE [Suspect]
     Active Substance: CETIRIZINE HYDROCHLORIDE
     Indication: SKIN LESION
     Dosage: UNK
     Route: 065
  2. BETAMETHASONE. [Concomitant]
     Active Substance: BETAMETHASONE
     Indication: SKIN LESION
     Dosage: UNK
     Route: 065
  3. ANFOCORT [Concomitant]
     Indication: SKIN LESION
     Dosage: UNK
     Route: 065
  4. LEVOCETIRIZINE [Suspect]
     Active Substance: LEVOCETIRIZINE
     Indication: SKIN LESION
     Dosage: UNK
     Route: 065
  5. DEFLAZACORT [Concomitant]
     Active Substance: DEFLAZACORT
     Indication: SKIN LESION
     Dosage: UNK
     Route: 065

REACTIONS (4)
  - Dermatitis contact [Recovered/Resolved]
  - Epidermal necrosis [Recovered/Resolved]
  - Eczema [Recovered/Resolved]
  - Skin weeping [Recovered/Resolved]
